FAERS Safety Report 7479693-0 (Version None)
Quarter: 2011Q2

REPORT INFORMATION
  Report Type: 
  Country: None (occurrence: None)
  Receive Date: 20110513
  Receipt Date: 20110404
  Transmission Date: 20111010
  Serious: Yes (Hospitalization, Other)
  Sender: FDA-Public Use
  Company Number: US-BAYER-201039436NA

PATIENT
  Age: 27 Year
  Sex: Female
  Weight: 79.4 kg

DRUGS (5)
  1. KLONOPIN [Concomitant]
  2. TOPROL-XL [Concomitant]
     Dosage: 25 MG, QD
     Dates: start: 20051221
  3. PHENTERMINE [Concomitant]
     Dosage: 35 MG, QD
  4. YASMIN [Suspect]
     Indication: PRODUCT USED FOR UNKNOWN INDICATION
     Dosage: UNK
     Route: 048
     Dates: start: 20060101, end: 20090901
  5. CLONAZEPAM [Concomitant]
     Indication: ANXIETY
     Dosage: 0.25 MG, BID
     Route: 048
     Dates: start: 20051221

REACTIONS (3)
  - CHOLECYSTITIS [None]
  - CHOLELITHIASIS [None]
  - GALLBLADDER DISORDER [None]
